FAERS Safety Report 10089176 (Version 6)
Quarter: 2015Q2

REPORT INFORMATION
  Report Type: Report from Study
  Country: FR (occurrence: FR)
  Receive Date: 20140421
  Receipt Date: 20150608
  Transmission Date: 20150821
  Serious: Yes (Hospitalization)
  Sender: FDA-Public Use
  Company Number: FR-ROCHE-1356345

PATIENT
  Age: 38 Year
  Sex: Female
  Weight: 92 kg

DRUGS (12)
  1. TRASTUZUMAB EMTANSINE [Suspect]
     Active Substance: ADO-TRASTUZUMAB EMTANSINE
     Indication: HER-2 POSITIVE BREAST CANCER
     Dosage: DATE OF LAST DOSE PRIOR TO SAE 13/FEB/2014
     Route: 042
     Dates: start: 20130327, end: 20140224
  2. GAVISCON (CALCIUM CARBONATE/SODIUM ALGINATE/SODIUM BICARBONATE) [Concomitant]
     Route: 065
     Dates: start: 20140220, end: 20140220
  3. MINIRIN [Concomitant]
     Active Substance: DESMOPRESSIN ACETATE
     Route: 065
     Dates: start: 20130821
  4. TRASTUZUMAB EMTANSINE [Suspect]
     Active Substance: ADO-TRASTUZUMAB EMTANSINE
     Route: 042
     Dates: start: 20140327
  5. INEXIUM [Concomitant]
     Active Substance: ESOMEPRAZOLE
     Route: 065
     Dates: start: 20140220, end: 20140223
  6. LANTUS [Concomitant]
     Active Substance: INSULIN GLARGINE
     Route: 065
     Dates: start: 201310
  7. STAGID [Concomitant]
     Active Substance: METFORMIN PAMOATE
     Route: 065
     Dates: start: 2013
  8. CACIT (FRANCE) [Concomitant]
     Route: 065
     Dates: start: 20140108
  9. PARACETAMOL [Concomitant]
     Active Substance: ACETAMINOPHEN
     Route: 065
     Dates: start: 20140220, end: 20140220
  10. REPAGLINIDE. [Concomitant]
     Active Substance: REPAGLINIDE
     Route: 065
     Dates: start: 201401
  11. HYDROCORTISONE. [Concomitant]
     Active Substance: HYDROCORTISONE
     Route: 065
  12. LEVOTHYROX [Concomitant]
     Active Substance: LEVOTHYROXINE
     Route: 065

REACTIONS (1)
  - Respiratory tract infection bacterial [Recovered/Resolved]

NARRATIVE: CASE EVENT DATE: 20140217
